FAERS Safety Report 5215131-6 (Version None)
Quarter: 2007Q1

REPORT INFORMATION
  Report Type: 
  Country: None (occurrence: None)
  Receive Date: 20070122
  Receipt Date: 20070110
  Transmission Date: 20070707
  Serious: Yes (Other)
  Sender: FDA-Public Use
  Company Number: US-PFIZER INC-2007003365

PATIENT
  Sex: Female
  Weight: 61.2 kg

DRUGS (6)
  1. CHANTIX [Suspect]
     Indication: SMOKING CESSATION THERAPY
     Route: 048
  2. TOPAMAX [Interacting]
     Indication: BIPOLAR DISORDER
     Dosage: DAILY DOSE:200MG-FREQ:INTERVAL: EVERY DAY
  3. SEROQUEL [Interacting]
  4. TRILEPTAL [Interacting]
  5. HYDROCODONE [Concomitant]
     Route: 048
  6. PROMETHAZINE [Concomitant]
     Route: 048

REACTIONS (10)
  - ABNORMAL DREAMS [None]
  - BIPOLAR DISORDER [None]
  - BLOOD GLUCOSE INCREASED [None]
  - CONFUSIONAL STATE [None]
  - DRUG INTERACTION [None]
  - HEADACHE [None]
  - LIVER DISORDER [None]
  - MIGRAINE [None]
  - NAUSEA [None]
  - SLEEP DISORDER [None]
